FAERS Safety Report 9066756 (Version 1)
Quarter: 2013Q1

REPORT INFORMATION
  Report Type: Spontaneous
  Country: US (occurrence: US)
  Receive Date: 20130214
  Receipt Date: 20130214
  Transmission Date: 20140127
  Serious: Yes (Hospitalization)
  Sender: FDA-Public Use
  Company Number: US-GLAXOSMITHKLINE-A1011265A

PATIENT
  Age: 54 Year
  Sex: Male

DRUGS (4)
  1. PAROXETINE [Suspect]
     Indication: DEPRESSION
     Dosage: 40MG PER DAY
     Route: 048
     Dates: start: 2001, end: 200705
  2. LIBRIUM [Concomitant]
  3. BENADRYL [Concomitant]
  4. UNSPECIFIED MEDICATION [Concomitant]

REACTIONS (10)
  - Loss of consciousness [Unknown]
  - Mental impairment [Unknown]
  - Drug administration error [Unknown]
  - Fall [Unknown]
  - Hallucination [Unknown]
  - Dehydration [Unknown]
  - Head injury [Unknown]
  - Anxiety [Unknown]
  - Depression [Unknown]
  - Meniscus injury [Unknown]
